FAERS Safety Report 5971976-6 (Version None)
Quarter: 2008Q4

REPORT INFORMATION
  Report Type: 
  Country: None (occurrence: None)
  Receive Date: 20081201
  Receipt Date: 20081118
  Transmission Date: 20090506
  Serious: Yes (Hospitalization)
  Sender: FDA-Public Use
  Company Number: FI-BIOGENIDEC-2008BI029288

PATIENT
  Age: 30 Year
  Sex: Male

DRUGS (6)
  1. TYSABRI [Suspect]
     Indication: MULTIPLE SCLEROSIS
     Route: 042
     Dates: start: 20080926
  2. HEINIX [Concomitant]
     Route: 048
  3. MEDROL [Concomitant]
     Indication: MULTIPLE SCLEROSIS RELAPSE
     Route: 048
  4. VENTOLIN [Concomitant]
     Indication: ASTHMA
     Route: 055
  5. SERETIDE EVOHALER [Concomitant]
     Indication: ASTHMA
     Route: 055
  6. FLUTICASONE PROPIONATE [Concomitant]
     Indication: ASTHMA
     Route: 048

REACTIONS (1)
  - DEEP VEIN THROMBOSIS [None]
